FAERS Safety Report 7308813-3 (Version None)
Quarter: 2011Q1

REPORT INFORMATION
  Report Type: 
  Country: None (occurrence: None)
  Receive Date: 20110223
  Receipt Date: 20110218
  Transmission Date: 20110831
  Serious: Yes (Death, Hospitalization)
  Sender: FDA-Public Use
  Company Number: PHHO2010TH12750

PATIENT
  Sex: Female
  Weight: 36.5 kg

DRUGS (7)
  1. AFINITOR [Suspect]
     Indication: METASTATIC RENAL CELL CARCINOMA
     Dosage: UNK
     Route: 048
     Dates: start: 20100607, end: 20100725
  2. MORPHINE [Concomitant]
  3. AFINITOR [Suspect]
     Dosage: 5MG/DAY
     Route: 048
     Dates: start: 20100726, end: 20100823
  4. FENTANYL-100 [Concomitant]
  5. KAMILLOSAN MUNDSPRAY [Concomitant]
  6. SENOKOT [Concomitant]
  7. ACYCLOVIR [Concomitant]

REACTIONS (8)
  - PALLOR [None]
  - FATIGUE [None]
  - NEOPLASM MALIGNANT [None]
  - KARNOFSKY SCALE WORSENED [None]
  - METASTATIC RENAL CELL CARCINOMA [None]
  - DYSPNOEA [None]
  - ANAEMIA [None]
  - HYPOGLYCAEMIA [None]
